FAERS Safety Report 14766719 (Version 4)
Quarter: 2018Q2

REPORT INFORMATION
  Report Type: Other
  Country: ES (occurrence: ES)
  Receive Date: 20180417
  Receipt Date: 20180530
  Transmission Date: 20180711
  Serious: Yes (Death, Other)
  Sender: FDA-Public Use
  Company Number: ES-MERCK KGAA-2045825

PATIENT
  Age: 62 Year
  Sex: Male

DRUGS (14)
  1. NOVOTHYROX [Suspect]
     Active Substance: LEVOTHYROXINE SODIUM
     Indication: HYPOTHYROIDISM
  2. QUETIAPINA [Suspect]
     Active Substance: QUETIAPINE
  3. HALOPERIDOL. [Suspect]
     Active Substance: HALOPERIDOL
  4. QUETIAPINA [Suspect]
     Active Substance: QUETIAPINE
  5. METFORMINA [Concomitant]
     Active Substance: METFORMIN HYDROCHLORIDE
  6. LORATADINA [Suspect]
     Active Substance: LORATADINE
  7. METFORMIN [Suspect]
     Active Substance: METFORMIN HYDROCHLORIDE
     Route: 048
  8. FLUTICASONE W/SALMETEROL [Concomitant]
     Active Substance: FLUTICASONE PROPIONATE\SALMETEROL XINAFOATE
     Route: 048
  9. HALOPERIDOL. [Suspect]
     Active Substance: HALOPERIDOL
  10. FLUTICASONE W/SALMETEROL [Suspect]
     Active Substance: FLUTICASONE PROPIONATE\SALMETEROL XINAFOATE
  11. VALPROIC ACID. [Suspect]
     Active Substance: VALPROIC ACID
  12. CLONAZEPAM. [Suspect]
     Active Substance: CLONAZEPAM
  13. TIOTROPIO [Suspect]
     Active Substance: TIOTROPIUM BROMIDE
  14. VALPROIC ACID. [Suspect]
     Active Substance: VALPROIC ACID

REACTIONS (4)
  - Coma [Unknown]
  - Ventricular fibrillation [Fatal]
  - Drug interaction [Not Recovered/Not Resolved]
  - Cardiac failure [Fatal]
